FAERS Safety Report 21973810 (Version 1)
Quarter: 2023Q1

REPORT INFORMATION
  Report Type: Spontaneous
  Country: US (occurrence: US)
  Receive Date: 20230209
  Receipt Date: 20230209
  Transmission Date: 20230418
  Serious: No
  Sender: FDA-Public Use
  Company Number: US-BRISTOL-MYERS SQUIBB COMPANY-2023-019804

PATIENT
  Age: 96 Year
  Sex: Female
  Weight: 46.72 kg

DRUGS (1)
  1. POMALYST [Suspect]
     Active Substance: POMALIDOMIDE
     Indication: Kaposi^s sarcoma
     Dosage: 2 MG, DAILY??FREQUENCY :28
     Route: 048

REACTIONS (1)
  - Dysphagia [Unknown]
